FAERS Safety Report 4749097-X (Version None)
Quarter: 2005Q3

REPORT INFORMATION
  Report Type: 
  Country: None (occurrence: None)
  Receive Date: 20050812
  Receipt Date: 20050418
  Transmission Date: 20060218
  Serious: Yes (Other)
  Sender: FDA-Public Use
  Company Number: 395139

PATIENT
  Age: 47 Year
  Sex: Male
  Weight: 102.5 kg

DRUGS (10)
  1. PEGASYS [Suspect]
     Indication: HEPATITIS C
     Dosage: 180 MCG 1 PER WEEK SUBCUTANEOUS
     Route: 058
     Dates: start: 20041015
  2. REBETOL [Concomitant]
  3. PREVACID [Concomitant]
  4. DAYPRO [Concomitant]
  5. HYDROCODONE BITARTRATE [Concomitant]
  6. FLEXERIL [Concomitant]
  7. PERCOCET [Concomitant]
  8. HYZAAR [Concomitant]
  9. CHLORPROMAZINE [Concomitant]
  10. FLAGYL [Concomitant]

REACTIONS (6)
  - CARDIOMEGALY [None]
  - COUGH [None]
  - DIABETES MELLITUS [None]
  - HEPATIC STEATOSIS [None]
  - PLEURAL EFFUSION [None]
  - TRICHOMONIASIS [None]
